FAERS Safety Report 16638627 (Version 1)
Quarter: 2019Q3

REPORT INFORMATION
  Report Type: Spontaneous
  Country: ES (occurrence: ES)
  Receive Date: 20190726
  Receipt Date: 20190726
  Transmission Date: 20191004
  Serious: Yes (Other)
  Sender: FDA-Public Use
  Company Number: ES-JNJFOC-20190723901

PATIENT
  Age: 15 Year
  Sex: Male

DRUGS (1)
  1. CONCERTA [Suspect]
     Active Substance: METHYLPHENIDATE HYDROCHLORIDE
     Indication: ATTENTION DEFICIT/HYPERACTIVITY DISORDER
     Route: 048
     Dates: start: 20110513, end: 201302

REACTIONS (2)
  - Madarosis [Recovered/Resolved]
  - Trichotillomania [Recovered/Resolved]

NARRATIVE: CASE EVENT DATE: 20110616
